FAERS Safety Report 20735318 (Version 1)
Quarter: 2022Q2

REPORT INFORMATION
  Report Type: Spontaneous
  Country: US (occurrence: US)
  Receive Date: 20220421
  Receipt Date: 20220421
  Transmission Date: 20220721
  Serious: No
  Sender: FDA-Public Use
  Company Number: US-BAUSCH-BL-2022-009361

PATIENT
  Sex: Female

DRUGS (2)
  1. LUMIFY [Suspect]
     Active Substance: BRIMONIDINE TARTRATE
     Indication: Ocular hyperaemia
     Dosage: DAILY USER FOR 2.5 YEARS
     Route: 047
  2. LUMIFY [Suspect]
     Active Substance: BRIMONIDINE TARTRATE

REACTIONS (6)
  - Instillation site inflammation [Recovering/Resolving]
  - Instillation site irritation [Recovering/Resolving]
  - Instillation site pain [Recovering/Resolving]
  - Photophobia [Recovering/Resolving]
  - Drug ineffective [Unknown]
  - Therapy interrupted [Unknown]
